FAERS Safety Report 15023696 (Version 1)
Quarter: 2018Q2

REPORT INFORMATION
  Report Type: Spontaneous
  Country: US (occurrence: US)
  Receive Date: 20180524
  Receipt Date: 20180524
  Transmission Date: 20180711
  Serious: Yes (Hospitalization)
  Sender: FDA-Public Use
  Company Number: None

PATIENT
  Age: 26 Year
  Sex: Male
  Weight: 84.9 kg

DRUGS (4)
  1. DEXAMETHASONE. [Suspect]
     Active Substance: DEXAMETHASONE
     Dates: end: 20180112
  2. METHOTREXATE. [Suspect]
     Active Substance: METHOTREXATE
     Dates: end: 20180108
  3. CYTARABINE. [Suspect]
     Active Substance: CYTARABINE
     Dates: end: 20180116
  4. VINCRISTINE SULFATE. [Suspect]
     Active Substance: VINCRISTINE SULFATE
     Dates: end: 20180108

REACTIONS (4)
  - Neutropenia [None]
  - Device related infection [None]
  - Bacterial infection [None]
  - Septic shock [None]

NARRATIVE: CASE EVENT DATE: 20180121
